FAERS Safety Report 4916366-X (Version None)
Quarter: 2006Q1

REPORT INFORMATION
  Report Type: 
  Country: None (occurrence: None)
  Receive Date: 20060217
  Receipt Date: 20051025
  Transmission Date: 20060701
  Serious: Yes (Hospitalization)
  Sender: FDA-Public Use
  Company Number: US-MERCK-0510USA09303

PATIENT
  Age: 65 Year
  Sex: Female
  Weight: 114 kg

DRUGS (27)
  1. SPIRONOLACTONE [Concomitant]
     Route: 065
  2. TIAZAC [Concomitant]
     Route: 065
  3. TOPROL-XL [Concomitant]
     Route: 065
  4. WARFARIN [Concomitant]
     Route: 065
  5. ZESTRIL [Concomitant]
     Route: 065
  6. ZETIA [Concomitant]
     Route: 065
  7. RELAFEN [Concomitant]
     Route: 048
     Dates: start: 19990101
  8. GLUCOSAMINE [Concomitant]
     Route: 048
     Dates: start: 19990101
  9. ASPIRIN [Concomitant]
     Route: 048
     Dates: start: 20000101
  10. ESTRACE [Concomitant]
     Route: 067
  11. FOSAMAX [Concomitant]
     Route: 065
  12. FUROSEMIDE [Concomitant]
     Route: 065
  13. IBUPROFEN [Concomitant]
     Route: 065
  14. KLOR-CON [Concomitant]
     Route: 065
  15. LIPITOR [Concomitant]
     Route: 065
  16. VIOXX [Suspect]
     Indication: ARTHRITIS
     Route: 048
     Dates: start: 19990903, end: 20040106
  17. ALLEGRA [Concomitant]
     Route: 065
  18. AMOXICILLIN [Concomitant]
     Route: 048
  19. BACTROBAN [Concomitant]
     Route: 061
  20. CEFUROXIME [Concomitant]
     Route: 065
  21. CEFZIL [Concomitant]
     Route: 065
  22. CEPHALEXIN [Concomitant]
     Route: 065
  23. DIGOXIN [Concomitant]
     Route: 065
  24. METOCLOPRAMIDE [Concomitant]
     Route: 065
  25. NIASPAN [Concomitant]
     Route: 065
  26. OXISTAT [Concomitant]
     Route: 065
  27. PROGESTERONE [Concomitant]
     Route: 065

REACTIONS (7)
  - ARTERIOSCLEROSIS [None]
  - CHEST PAIN [None]
  - CORONARY ARTERY DISEASE [None]
  - KNEE ARTHROPLASTY [None]
  - MYOCARDIAL INFARCTION [None]
  - OEDEMA PERIPHERAL [None]
  - SPINAL LAMINECTOMY [None]
